FAERS Safety Report 8621812-4 (Version None)
Quarter: 2012Q3

REPORT INFORMATION
  Report Type: 
  Country: None (occurrence: None)
  Receive Date: 20120822
  Receipt Date: 20120822
  Transmission Date: 20120928
  Serious: No
  Sender: FDA-Public Use
  Company Number: None

PATIENT
  Sex: Female
  Weight: 90.7194 kg

DRUGS (1)
  1. LAMOTRIGINE [Suspect]
     Dosage: 150 MG, 1 DAILY, PO
     Route: 048
     Dates: start: 20081109, end: 20120802

REACTIONS (5)
  - IRRITABILITY [None]
  - DRUG INEFFECTIVE [None]
  - MOOD ALTERED [None]
  - PRODUCT SUBSTITUTION ISSUE [None]
  - FRUSTRATION [None]
